FAERS Safety Report 19803701 (Version 1)
Quarter: 2021Q3

REPORT INFORMATION
  Report Type: Spontaneous
  Country: US (occurrence: US)
  Receive Date: 20210902
  Receipt Date: 20210902
  Transmission Date: 20211014
  Serious: No
  Sender: FDA-Public Use
  Company Number: None

PATIENT
  Sex: Female

DRUGS (1)
  1. OTEZLA [Suspect]
     Active Substance: APREMILAST
     Indication: PSORIASIS
     Dosage: DIRECTIONS: OTEZLA TITRATION PACK 10/20/30M TABLET TAKE BY MOUTH AS INSTRUCTED. DAY 1:10MG IN AM, DAY 2: 10MG AM AND PM, DAY 3: 10MG AM AND 20MG PM, DAY 4: 20MG AM AND PM, DAY 5: 20M AM AND 30MG PM THEN 30MG 2 TIMES A DAY.?
     Route: 048
     Dates: start: 20210731

REACTIONS (7)
  - Pruritus [None]
  - Nausea [None]
  - Erythema [None]
  - Burning sensation [None]
  - Weight decreased [None]
  - Diarrhoea [None]
  - Drug ineffective [None]
